FAERS Safety Report 10457597 (Version 2)
Quarter: 2014Q3

REPORT INFORMATION
  Report Type: Spontaneous
  Country: DE (occurrence: FR)
  Receive Date: 20140916
  Receipt Date: 20140916
  Transmission Date: 20150326
  Serious: Yes (Hospitalization)
  Sender: FDA-Public Use
  Company Number: FR-FRI-1000069805

PATIENT
  Age: 85 Year
  Sex: Female

DRUGS (5)
  1. KENZEN [Concomitant]
     Active Substance: CANDESARTAN
     Route: 048
  2. MEMANTINE [Suspect]
     Active Substance: MEMANTINE
     Route: 048
  3. ESCITALOPRAM [Concomitant]
     Active Substance: ESCITALOPRAM OXALATE
     Route: 048
  4. TIMOFEROL [Concomitant]
     Route: 048
  5. DAFALGAN [Concomitant]
     Active Substance: ACETAMINOPHEN

REACTIONS (6)
  - Pain [None]
  - Oedema peripheral [None]
  - Joint range of motion decreased [None]
  - Somnolence [Unknown]
  - Hallucination [Unknown]
  - Fall [Unknown]

NARRATIVE: CASE EVENT DATE: 20140523
